FAERS Safety Report 5386838-5 (Version None)
Quarter: 2007Q3

REPORT INFORMATION
  Report Type: 
  Country: None (occurrence: None)
  Receive Date: 20070713
  Receipt Date: 20070712
  Transmission Date: 20080115
  Serious: Yes (Death)
  Sender: FDA-Public Use
  Company Number: JP-ROXANE LABORATORIES, INC-2007-DE-04012GD

PATIENT
  Age: 73 Year
  Sex: Male

DRUGS (4)
  1. MEXILETINE HYDROCHLORIDE [Suspect]
     Indication: VENTRICULAR TACHYCARDIA
  2. LIDOCAINE [Suspect]
     Indication: VENTRICULAR TACHYCARDIA
  3. AMIODARONE HCL [Suspect]
     Indication: VENTRICULAR TACHYCARDIA
  4. PROCAINAMIDE [Suspect]
     Indication: VENTRICULAR TACHYCARDIA

REACTIONS (4)
  - CARDIAC FAILURE [None]
  - DRUG INEFFECTIVE [None]
  - MYOCARDIAL INFARCTION [None]
  - THROMBOSIS IN DEVICE [None]
